FAERS Safety Report 16693850 (Version 2)
Quarter: 2020Q2

REPORT INFORMATION
  Report Type: Spontaneous
  Country: US (occurrence: US)
  Receive Date: 20190812
  Receipt Date: 20200609
  Transmission Date: 20200713
  Serious: Yes (Other)
  Sender: FDA-Public Use
  Company Number: US-VERTEX PHARMACEUTICALS-2019-007359

PATIENT
  Sex: Male
  Weight: 75 kg

DRUGS (7)
  1. PANCREASE [PANCREATIN] [Concomitant]
     Dosage: UNK
  2. SYMDEKO [Suspect]
     Active Substance: IVACAFTOR\TEZACAFTOR
     Indication: CYSTIC FIBROSIS
     Dosage: (100 MG TEZACAFTOR/150 MG IVACAFTOR; 150 MG IVACAFTOR)
     Route: 048
     Dates: start: 201808, end: 20191128
  3. BETHKIS [Concomitant]
     Active Substance: TOBRAMYCIN
     Dosage: UNK
  4. HYPERTONIC SALINE SOLUTION [Concomitant]
     Active Substance: SODIUM CHLORIDE
     Dosage: UNK
  5. SODIUM CHLORIDE. [Concomitant]
     Active Substance: SODIUM CHLORIDE
     Dosage: UNK
  6. ONFI [Suspect]
     Active Substance: CLOBAZAM
     Indication: SEIZURE
     Dosage: UNK
     Route: 065
     Dates: end: 201911
  7. XOPENEX [Concomitant]
     Active Substance: LEVALBUTEROL HYDROCHLORIDE
     Dosage: UNK

REACTIONS (12)
  - Somnolence [Unknown]
  - Lethargy [Unknown]
  - Headache [Unknown]
  - Fatigue [Recovering/Resolving]
  - Depression [Unknown]
  - Anxiety [Unknown]
  - Epilepsy [Unknown]
  - Myalgia [Unknown]
  - Mood altered [Unknown]
  - Anhedonia [Unknown]
  - Food refusal [Unknown]
  - Pain [Unknown]

NARRATIVE: CASE EVENT DATE: 2019
